FAERS Safety Report 21620221 (Version 2)
Quarter: 2023Q2

REPORT INFORMATION
  Report Type: Spontaneous
  Country: TR (occurrence: TR)
  Receive Date: 20221121
  Receipt Date: 20230417
  Transmission Date: 20230721
  Serious: Yes (Other)
  Sender: FDA-Public Use
  Company Number: US-SANOFI-01365799

PATIENT
  Age: 5 Year
  Sex: Female

DRUGS (1)
  1. MYOZYME [Suspect]
     Active Substance: ALGLUCOSIDASE ALFA
     Indication: Glycogen storage disease type II
     Dosage: 40 ML/KG, TWICE A MONTH

REACTIONS (5)
  - Anaphylactic shock [Unknown]
  - Gait disturbance [Unknown]
  - Muscular weakness [Unknown]
  - Cardiac hypertrophy [Unknown]
  - General physical health deterioration [Unknown]

NARRATIVE: CASE EVENT DATE: 20201001
